FAERS Safety Report 16938189 (Version 1)
Quarter: 2019Q4

REPORT INFORMATION
  Report Type: Spontaneous
  Country: TN (occurrence: TN)
  Receive Date: 20191018
  Receipt Date: 20191018
  Transmission Date: 20200122
  Serious: Yes (Death, Other)
  Sender: FDA-Public Use
  Company Number: TN-FRESENIUS KABI-FK201911554

PATIENT
  Age: 32 Year
  Sex: Female

DRUGS (3)
  1. HEPARIN (MANUFACTURER UNKNOWN) [Suspect]
     Active Substance: HEPARIN SODIUM
     Indication: PULMONARY EMBOLISM
     Dosage: UNKNOWN
     Route: 065
  2. ALTEPLASE. [Suspect]
     Active Substance: ALTEPLASE
     Route: 040
  3. ALTEPLASE. [Suspect]
     Active Substance: ALTEPLASE
     Indication: PULMONARY EMBOLISM
     Route: 040

REACTIONS (3)
  - Cardiogenic shock [Fatal]
  - Exposure during pregnancy [Unknown]
  - Treatment failure [Fatal]
